FAERS Safety Report 8781733 (Version 1)
Quarter: 2012Q4

REPORT INFORMATION
  Report Type: 
  Country: US (occurrence: US)
  Receive Date: 20120913
  Receipt Date: 20120913
  Transmission Date: 20130627
  Serious: Yes (Other)
  Sender: FDA-Public Use
  Company Number: US-ASTRAZENECA-2012SE69831

PATIENT
  Age: 80 Year
  Sex: Female

DRUGS (2)
  1. SYMBICORT PMDI [Suspect]
     Route: 055
  2. NEXIUM [Suspect]
     Route: 048

REACTIONS (2)
  - Pneumonia [Unknown]
  - Malaise [Unknown]
